FAERS Safety Report 22968516 (Version 3)
Quarter: 2023Q4

REPORT INFORMATION
  Report Type: Spontaneous
  Country: ZA (occurrence: ZA)
  Receive Date: 20230921
  Receipt Date: 20231023
  Transmission Date: 20240109
  Serious: Yes (Hospitalization)
  Sender: FDA-Public Use
  Company Number: ZA-SANOFI-01747535

PATIENT
  Age: 56 Year
  Sex: Female

DRUGS (2)
  1. APIDRA [Suspect]
     Active Substance: INSULIN GLULISINE
     Indication: Diabetes mellitus
     Dosage: UNK
     Route: 065
     Dates: start: 1994, end: 2023
  2. LANTUS [Suspect]
     Active Substance: INSULIN GLARGINE
     Indication: Diabetes mellitus
     Dosage: 60 IU
     Route: 065
     Dates: start: 1994

REACTIONS (7)
  - Functional gastrointestinal disorder [Unknown]
  - Bladder dysfunction [Unknown]
  - Nervous system disorder [Unknown]
  - Dyspepsia [Recovering/Resolving]
  - Dry mouth [Unknown]
  - Blood glucose fluctuation [Unknown]
  - Drug ineffective [Unknown]

NARRATIVE: CASE EVENT DATE: 20230821
